FAERS Safety Report 7076934-9 (Version None)
Quarter: 2010Q4

REPORT INFORMATION
  Report Type: 
  Country: None (occurrence: None)
  Receive Date: 20101101
  Receipt Date: 20101021
  Transmission Date: 20110411
  Serious: Yes (Other)
  Sender: FDA-Public Use
  Company Number: US-CELGENEUS-163-20785-10032510

PATIENT
  Sex: Female
  Weight: 72.64 kg

DRUGS (11)
  1. THALOMID [Suspect]
     Indication: MULTIPLE MYELOMA
     Route: 048
     Dates: start: 20040218
  2. THALOMID [Suspect]
     Route: 048
     Dates: start: 20100217
  3. THALOMID [Suspect]
     Route: 048
     Dates: start: 20091201
  4. THALOMID [Suspect]
     Route: 048
     Dates: start: 20080901
  5. THALOMID [Suspect]
     Route: 048
     Dates: start: 20080801
  6. THALOMID [Suspect]
     Route: 048
     Dates: start: 20050101
  7. VITAMIN B COMPLEX CAP [Concomitant]
     Route: 065
  8. VITAMIN D [Concomitant]
     Route: 065
  9. IRON [Concomitant]
     Route: 065
  10. ZOMETA [Concomitant]
     Route: 065
  11. DEXAMETHASONE [Concomitant]
     Route: 065

REACTIONS (2)
  - BLOOD HUMAN CHORIONIC GONADOTROPIN ABNORMAL [None]
  - BLOOD HUMAN CHORIONIC GONADOTROPIN INCREASED [None]
